FAERS Safety Report 15254156 (Version 1)
Quarter: 2018Q3

REPORT INFORMATION
  Report Type: Report from Study
  Country: FR (occurrence: FR)
  Receive Date: 20180808
  Receipt Date: 20180808
  Transmission Date: 20181010
  Serious: Yes (Hospitalization)
  Sender: FDA-Public Use
  Company Number: FR-TEVA-2018-FR-935917

PATIENT
  Age: 71 Year
  Sex: Female

DRUGS (6)
  1. LETROZOLE. [Suspect]
     Active Substance: LETROZOLE
     Dosage: UNK
     Route: 065
     Dates: start: 20171121
  2. JELONET [Concomitant]
     Indication: BLISTER
     Dosage: UNK
     Route: 065
     Dates: start: 20170306
  3. FUSIDIC ACID [Concomitant]
     Active Substance: FUSIDIC ACID
     Indication: BLISTER
     Dosage: UNK
     Route: 065
     Dates: start: 20170628
  4. LETROZOLE. [Suspect]
     Active Substance: LETROZOLE
     Indication: BREAST CANCER METASTATIC
     Dosage: UNK
     Route: 065
     Dates: start: 20150828
  5. CARMELLOSE SODIUM [Concomitant]
     Active Substance: CARBOXYMETHYLCELLULOSE SODIUM
     Indication: BLISTER
     Dosage: UNK
     Route: 065
  6. EFFERALGAN [Concomitant]
     Active Substance: ACETAMINOPHEN
     Indication: BLISTER
     Dosage: UNK
     Route: 065
     Dates: start: 20170503

REACTIONS (1)
  - Skin ulcer [Recovered/Resolved with Sequelae]

NARRATIVE: CASE EVENT DATE: 201703
